FAERS Safety Report 21444324 (Version 3)
Quarter: 2022Q4

REPORT INFORMATION
  Report Type: Spontaneous
  Country: JP (occurrence: JP)
  Receive Date: 20221012
  Receipt Date: 20221206
  Transmission Date: 20230113
  Serious: Yes (Hospitalization, Other)
  Sender: FDA-Public Use
  Company Number: JP-BAYER-2022A136639

PATIENT
  Age: 7 Decade
  Sex: Female

DRUGS (5)
  1. EYLEA [Suspect]
     Active Substance: AFLIBERCEPT
     Indication: Ocular albinism
     Dosage: 2 MG, ONCE; SOLUTION FOR INJECTION IN PRE-FILLED SYRINGE; STRENGTH: 40 MG/ML
     Route: 031
     Dates: end: 201911
  2. EYLEA [Suspect]
     Active Substance: AFLIBERCEPT
     Indication: Diabetic retinopathy
  3. EYLEA [Suspect]
     Active Substance: AFLIBERCEPT
     Indication: Iris neovascularisation
  4. EYLEA [Suspect]
     Active Substance: AFLIBERCEPT
     Indication: Anterior segment neovascularisation
  5. EYLEA [Suspect]
     Active Substance: AFLIBERCEPT
     Indication: Diabetic retinal oedema

REACTIONS (2)
  - Vitreous haemorrhage [Unknown]
  - Myocardial infarction [Recovering/Resolving]

NARRATIVE: CASE EVENT DATE: 20191201
